FAERS Safety Report 15228244 (Version 2)
Quarter: 2018Q3

REPORT INFORMATION
  Report Type: Spontaneous
  Country: US (occurrence: US)
  Receive Date: 20180801
  Receipt Date: 20180821
  Transmission Date: 20181010
  Serious: Yes (Other)
  Sender: FDA-Public Use
  Company Number: US-TEVA-2018-US-934768

PATIENT
  Age: 41 Year
  Sex: Male

DRUGS (1)
  1. SILDENAFIL. [Suspect]
     Active Substance: SILDENAFIL
     Indication: INTENTIONAL PRODUCT MISUSE
     Dosage: 3?4 TIMES HIGHER THAN RECOMMENDED DOSE CONSUMPTION
     Route: 048

REACTIONS (3)
  - Retinopathy [Recovered/Resolved]
  - Maculopathy [Recovered/Resolved]
  - Intentional product misuse [Recovered/Resolved]
